FAERS Safety Report 25723391 (Version 2)
Quarter: 2025Q3

REPORT INFORMATION
  Report Type: Spontaneous
  Country: JP (occurrence: JP)
  Receive Date: 20250825
  Receipt Date: 20250912
  Transmission Date: 20251020
  Serious: Yes (Other)
  Sender: GLAXOSMITHKLINE
  Company Number: JP-TAKEDA-2025TJP008418

PATIENT
  Age: 55 Year
  Sex: Female
  Weight: 51.3 kg

DRUGS (1)
  1. ZEJULA [Suspect]
     Active Substance: NIRAPARIB
     Indication: Ovarian cancer recurrent

REACTIONS (1)
  - Ovarian cancer recurrent [Unknown]

NARRATIVE: CASE EVENT DATE: 20250715
